FAERS Safety Report 6103650-X (Version None)
Quarter: 2009Q1

REPORT INFORMATION
  Report Type: 
  Country: None (occurrence: None)
  Receive Date: 20090227
  Receipt Date: 20090224
  Transmission Date: 20090719
  Serious: Yes (Death)
  Sender: FDA-Public Use
  Company Number: 2009JP001021

PATIENT
  Age: 65 Year
  Sex: Male

DRUGS (5)
  1. FUNGUARD(MICAFUNGIN) INJECTION [Suspect]
  2. DHPG (GANCICLOVIR) FORMULATION UNKNOWN [Concomitant]
  3. GLOBULIN (IMMUNOGLOBULIN) FORMULATION UNKNOWN [Concomitant]
  4. REMINARON (GABEXATE MESILATE) FORMULATION UNKNOWN [Concomitant]
  5. SULFAMETHOXAZOLE AND TRIMETHOPRIM) (SULFAMETHOXAZLE, TRIMETHOPRIM) FRO [Concomitant]

REACTIONS (2)
  - GASTROINTESTINAL HAEMORRHAGE [None]
  - PLATELET COUNT DECREASED [None]
